FAERS Safety Report 11277925 (Version 2)
Quarter: 2015Q3

REPORT INFORMATION
  Report Type: Spontaneous
  Country: FR (occurrence: FR)
  Receive Date: 20150716
  Receipt Date: 20150723
  Transmission Date: 20151125
  Serious: Yes (Death)
  Sender: FDA-Public Use
  Company Number: FR-ASTRAZENECA-2015SE67557

PATIENT
  Age: 23309 Day
  Sex: Male

DRUGS (8)
  1. XYLOCAINE NEBULIZATION [Suspect]
     Active Substance: LIDOCAINE HYDROCHLORIDE
     Indication: MIGRAINE
     Route: 002
     Dates: start: 20150311
  2. MAXALTLYO [Suspect]
     Active Substance: RIZATRIPTAN BENZOATE
     Indication: MIGRAINE
     Dosage: ONE DF IN CASE OF MIGRAINE CRISIS (2 DF MAXIMUM PER DAY)
     Route: 048
     Dates: start: 20150311
  3. VERAPAMIL [Suspect]
     Active Substance: VERAPAMIL HYDROCHLORIDE
     Route: 048
     Dates: start: 20150116
  4. ZOMIGORO [Suspect]
     Active Substance: ZOLMITRIPTAN
     Indication: MIGRAINE
     Dosage: ONE DF IN CASE OF MIGRAINE CRISIS (MAXIMUM 2 TABLETS PER DAY)
     Route: 048
     Dates: start: 20150311
  5. CO-RENITEC [Concomitant]
     Active Substance: ENALAPRIL\HYDROCHLOROTHIAZIDE
  6. EPITOMAX [Suspect]
     Active Substance: TOPIRAMATE
     Route: 048
     Dates: start: 20150311, end: 20150323
  7. CRESTOR [Concomitant]
     Active Substance: ROSUVASTATIN CALCIUM
  8. KARDEGIC [Concomitant]
     Active Substance: ASPIRIN LYSINE

REACTIONS (1)
  - Death [Fatal]

NARRATIVE: CASE EVENT DATE: 20150323
